FAERS Safety Report 8916986 (Version 3)
Quarter: 2013Q2

REPORT INFORMATION
  Report Type: Spontaneous
  Country: IT (occurrence: IT)
  Receive Date: 20121120
  Receipt Date: 20130506
  Transmission Date: 20140414
  Serious: Yes (Disabling, Other)
  Sender: FDA-Public Use
  Company Number: IT-PFIZER INC-2012286814

PATIENT
  Age: 32 Year
  Sex: Male

DRUGS (4)
  1. PREGABALIN [Suspect]
     Indication: NEURALGIA
     Dosage: 75 MG, 2X/DAY
  2. PREGABALIN [Suspect]
     Dosage: 150 MG, 2X/DAY
  3. PREGABALIN [Suspect]
     Dosage: 300 MG, 2X/DAY
  4. PREGABALIN [Suspect]
     Dosage: 4500 MG, DAILY

REACTIONS (8)
  - Overdose [Not Recovered/Not Resolved]
  - Drug abuse [Not Recovered/Not Resolved]
  - Drug withdrawal syndrome [Not Recovered/Not Resolved]
  - Anxiety [Not Recovered/Not Resolved]
  - Irritability [Not Recovered/Not Resolved]
  - Aggression [Not Recovered/Not Resolved]
  - Feeling of relaxation [Not Recovered/Not Resolved]
  - Feeling abnormal [Not Recovered/Not Resolved]
